FAERS Safety Report 8053998-7 (Version None)
Quarter: 2012Q1

REPORT INFORMATION
  Report Type: 
  Country: None (occurrence: None)
  Receive Date: 20120118
  Receipt Date: 20120116
  Transmission Date: 20120608
  Serious: No
  Sender: FDA-Public Use
  Company Number: US-TEVA-304955USA

PATIENT
  Sex: Male
  Weight: 36.774 kg

DRUGS (4)
  1. PROAIR HFA [Suspect]
     Indication: COUGH
  2. FLUTICASONE PROPIONATE [Concomitant]
     Indication: COUGH
  3. PROAIR HFA [Suspect]
     Indication: ASTHMA
     Dosage: 360 MICROGRAM;
     Route: 055
  4. FLUTICASONE PROPIONATE [Concomitant]
     Indication: ASTHMA
     Dosage: 1 PUFF
     Route: 055

REACTIONS (2)
  - DRUG INEFFECTIVE [None]
  - COUGH [None]
